FAERS Safety Report 8258724-4 (Version None)
Quarter: 2012Q2

REPORT INFORMATION
  Report Type: 
  Country: None (occurrence: None)
  Receive Date: 20120404
  Receipt Date: 20120404
  Transmission Date: 20120825
  Serious: Yes (Hospitalization)
  Sender: FDA-Public Use
  Company Number: None

PATIENT
  Age: 64 Year
  Sex: Female
  Weight: 87.089 kg

DRUGS (2)
  1. REVLIMID [Suspect]
     Indication: CHRONIC LYMPHOCYTIC LEUKAEMIA
     Dosage: 5 MG
     Route: 048
     Dates: start: 20120213, end: 20120301
  2. REVLIMID [Concomitant]
     Dosage: 10 MG
     Route: 048
     Dates: start: 20120302, end: 20120318

REACTIONS (12)
  - DYSPNOEA [None]
  - ABASIA [None]
  - INCOHERENT [None]
  - THROMBOCYTOPENIA [None]
  - HYPOKALAEMIA [None]
  - ELECTROCARDIOGRAM QT PROLONGED [None]
  - ANAEMIA [None]
  - FATIGUE [None]
  - NEUTROPENIA [None]
  - CONFUSIONAL STATE [None]
  - ASTHENIA [None]
  - DYSSTASIA [None]
